FAERS Safety Report 20813801 (Version 2)
Quarter: 2025Q2

REPORT INFORMATION
  Report Type: Spontaneous
  Country: SA (occurrence: SA)
  Receive Date: 20220511
  Receipt Date: 20250609
  Transmission Date: 20250716
  Serious: Yes (Other)
  Sender: AUROBINDO
  Company Number: SA-MLMSERVICE-20220420-3510707-1

PATIENT
  Age: 35 Year
  Sex: Female
  Weight: 65 kg

DRUGS (2)
  1. CELECOXIB [Suspect]
     Active Substance: CELECOXIB
     Indication: Sacroiliitis
     Dosage: 200 MILLIGRAM, ONCE A DAY
     Route: 065
     Dates: start: 201904
  2. ACETAMINOPHEN [Concomitant]
     Active Substance: ACETAMINOPHEN
     Indication: Product used for unknown indication
     Route: 065

REACTIONS (1)
  - Blindness unilateral [Recovered/Resolved]

NARRATIVE: CASE EVENT DATE: 20190101
